FAERS Safety Report 23325715 (Version 2)
Quarter: 2024Q3

REPORT INFORMATION
  Report Type: Spontaneous
  Country: GB (occurrence: GB)
  Receive Date: 20231221
  Receipt Date: 20240706
  Transmission Date: 20241017
  Serious: Yes (Hospitalization, Other)
  Sender: TEVA
  Company Number: GB-MEDAC-2023002143

PATIENT
  Sex: Female

DRUGS (2)
  1. EPIRUBICIN [Suspect]
     Active Substance: EPIRUBICIN
     Indication: Triple negative breast cancer
     Dosage: 4 CYCLES; ; NUMBER OF SEPARATE DOSES:
     Route: 065
  2. CYCLOPHOSPHAMIDE [Suspect]
     Active Substance: CYCLOPHOSPHAMIDE
     Indication: Triple negative breast cancer
     Dosage: 4 CYCLES; ; NUMBER OF SEPARATE DOSES:
     Route: 065

REACTIONS (2)
  - Hypertransaminasaemia [Recovering/Resolving]
  - Pneumonitis [Recovering/Resolving]

NARRATIVE: CASE EVENT DATE: 20231001
